FAERS Safety Report 8831409 (Version 1)
Quarter: 2012Q4

REPORT INFORMATION
  Report Type: 
  Country: DE (occurrence: DE)
  Receive Date: 20121009
  Receipt Date: 20121009
  Transmission Date: 20130627
  Serious: Yes (Other)
  Sender: FDA-Public Use
  Company Number: DE-BRISTOL-MYERS SQUIBB COMPANY-17007758

PATIENT
  Sex: Female

DRUGS (1)
  1. LITALIR [Suspect]

REACTIONS (1)
  - Depression [Unknown]
